FAERS Safety Report 15119549 (Version 2)
Quarter: 2018Q3

REPORT INFORMATION
  Report Type: Spontaneous
  Country: US (occurrence: US)
  Receive Date: 20180709
  Receipt Date: 20180723
  Transmission Date: 20181010
  Serious: Yes (Other)
  Sender: FDA-Public Use
  Company Number: US-PFIZER INC-2018113447

PATIENT
  Age: 61 Year
  Sex: Female
  Weight: 69 kg

DRUGS (3)
  1. IBRANCE [Suspect]
     Active Substance: PALBOCICLIB
     Indication: BREAST CANCER METASTATIC
     Dosage: 100 MG, CYCLIC (100 MG CAPSULES, 21 DAYS ON 7 DAYS OFF/TAKES IBRANCE IN THE EVENING)
     Route: 048
     Dates: start: 201711
  2. EXEMESTANE. [Concomitant]
     Active Substance: EXEMESTANE
     Indication: AROMATASE INHIBITION THERAPY
     Dosage: UNK
     Dates: start: 201711
  3. IBRANCE [Suspect]
     Active Substance: PALBOCICLIB
     Dosage: 125 MG, UNK

REACTIONS (5)
  - Alopecia [Unknown]
  - Nausea [Unknown]
  - Neuropathy peripheral [Unknown]
  - Drug dose omission [Unknown]
  - Pyrexia [Unknown]

NARRATIVE: CASE EVENT DATE: 20180315
